FAERS Safety Report 7200783-1 (Version None)
Quarter: 2010Q4

REPORT INFORMATION
  Report Type: 
  Country: None (occurrence: None)
  Receive Date: 20101228
  Receipt Date: 20101220
  Transmission Date: 20110411
  Serious: Yes (Other)
  Sender: FDA-Public Use
  Company Number: AU-PFIZER INC-2010140267

PATIENT
  Age: 35 Year
  Sex: Male

DRUGS (1)
  1. CHAMPIX [Suspect]
     Indication: SMOKING CESSATION THERAPY
     Dosage: 1 MG, 2X/DAY
     Route: 048
     Dates: start: 20100817, end: 20100827

REACTIONS (4)
  - DEPRESSION [None]
  - MENTAL DISABILITY [None]
  - SCHIZOPHRENIA [None]
  - SUICIDAL IDEATION [None]
